FAERS Safety Report 4338202-5 (Version None)
Quarter: 2004Q2

REPORT INFORMATION
  Report Type: 
  Country: None (occurrence: None)
  Receive Date: 20040407
  Receipt Date: 20040326
  Transmission Date: 20050107
  Serious: Yes (Hospitalization)
  Sender: FDA-Public Use
  Company Number: DE-JNJFOC-20040306130

PATIENT
  Age: 71 Year
  Sex: Female

DRUGS (5)
  1. REOPRO [Suspect]
     Indication: CORONARY ANGIOPLASTY
     Dosage: 0.25 MG/KG BOLUS DOSE FOLLOWED BY 10 UG/MIN CONTINUOUS INFUSION OVER 12 HOURS
     Route: 040
     Dates: start: 20040325
  2. REOPRO [Suspect]
     Indication: STENT PLACEMENT
     Dosage: 0.25 MG/KG BOLUS DOSE FOLLOWED BY 10 UG/MIN CONTINUOUS INFUSION OVER 12 HOURS
     Route: 040
     Dates: start: 20040325
  3. ACETYLSALICYLIC ACID SRT [Concomitant]
  4. HEPARIN [Concomitant]
  5. CLOPIDOGREL (CLOPIDOGREL) [Concomitant]

REACTIONS (5)
  - ALPHA HYDROXYBUTYRATE DEHYDROGENASE INCREASED [None]
  - BLOOD LACTATE DEHYDROGENASE INCREASED [None]
  - HAEMOGLOBIN DECREASED [None]
  - HAEMOLYSIS [None]
  - RED BLOOD CELL COUNT DECREASED [None]
